FAERS Safety Report 6786821-9 (Version None)
Quarter: 2010Q2

REPORT INFORMATION
  Report Type: 
  Country: None (occurrence: None)
  Receive Date: 20100623
  Receipt Date: 20100610
  Transmission Date: 20101027
  Serious: Yes (Life-Threatening, Hospitalization, Other)
  Sender: FDA-Public Use
  Company Number: GB-ELI_LILLY_AND_COMPANY-GB201004001420

PATIENT
  Age: 67 Year
  Sex: Female

DRUGS (2)
  1. FLUOXETINE [Suspect]
     Indication: DEPRESSION
     Dosage: 60 MG, UNK
  2. ONDANSETRON [Concomitant]
     Indication: NAUSEA
     Dosage: 4 MG, 2/D

REACTIONS (14)
  - BLOOD MAGNESIUM DECREASED [None]
  - BLOOD POTASSIUM DECREASED [None]
  - BRAIN NATRIURETIC PEPTIDE INCREASED [None]
  - CARDIAC DISORDER [None]
  - CRYING [None]
  - DRUG INTERACTION [None]
  - ELECTROCARDIOGRAM QT PROLONGED [None]
  - ELECTROCARDIOGRAM T WAVE INVERSION [None]
  - ELECTROLYTE DEPLETION [None]
  - EMOTIONAL DISTRESS [None]
  - STRESS CARDIOMYOPATHY [None]
  - SYNCOPE [None]
  - TORSADE DE POINTES [None]
  - TROPONIN I INCREASED [None]
